FAERS Safety Report 5533618-3 (Version None)
Quarter: 2007Q4

REPORT INFORMATION
  Report Type: 
  Country: None (occurrence: None)
  Receive Date: 20071129
  Receipt Date: 20071117
  Transmission Date: 20080405
  Serious: Yes (Hospitalization)
  Sender: FDA-Public Use
  Company Number: 2007PV000045

PATIENT
  Sex: Female

DRUGS (2)
  1. DEPOCYT [Suspect]
     Indication: MENINGEAL DISORDER
     Dosage: 50 MG;X6, INTH
     Route: 037
  2. METHOTREXATE [Concomitant]

REACTIONS (12)
  - ARACHNOIDITIS [None]
  - CONVULSION [None]
  - FATIGUE [None]
  - FLAT AFFECT [None]
  - GAIT DISTURBANCE [None]
  - HEADACHE [None]
  - HYPONATRAEMIA [None]
  - INFECTION [None]
  - INFLAMMATION [None]
  - MENTAL STATUS CHANGES [None]
  - NAUSEA [None]
  - VOMITING [None]
